FAERS Safety Report 4324328-9 (Version None)
Quarter: 2004Q1

REPORT INFORMATION
  Report Type: 
  Country: None (occurrence: None)
  Receive Date: 20040326
  Receipt Date: 20040123
  Transmission Date: 20041129
  Serious: No
  Sender: FDA-Public Use
  Company Number: US-GLAXOSMITHKLINE-A0495590A

PATIENT
  Sex: Female

DRUGS (4)
  1. ADVAIR DISKUS 100/50 [Suspect]
     Indication: ASTHMA
     Route: 055
     Dates: start: 20030401
  2. DOXYCYCLIN [Concomitant]
  3. SYNTHROID [Concomitant]
  4. ORAL CONTRACEPTIVE [Concomitant]

REACTIONS (7)
  - DIZZINESS [None]
  - FEAR [None]
  - INSOMNIA [None]
  - PALPITATIONS [None]
  - RESTLESSNESS [None]
  - SENSORY DISTURBANCE [None]
  - THROAT TIGHTNESS [None]
